FAERS Safety Report 9766478 (Version 1)
Quarter: 2013Q4

REPORT INFORMATION
  Report Type: Spontaneous
  Country: US (occurrence: None)
  Receive Date: 20131216
  Receipt Date: 20131216
  Transmission Date: 20140711
  Serious: Yes (Other)
  Sender: FDA-Public Use
  Company Number: None

PATIENT
  Age: 51 Year
  Sex: Male

DRUGS (1)
  1. TOBI [Suspect]
     Indication: RESPIRATORY TRACT INFECTION
     Dosage: 2 VIALS BID RESPIRATORY
     Dates: start: 20131007, end: 20131210

REACTIONS (1)
  - Drug hypersensitivity [None]
